FAERS Safety Report 9910678 (Version 6)
Quarter: 2014Q4

REPORT INFORMATION
  Report Type: Spontaneous
  Country: US (occurrence: US)
  Receive Date: 20140219
  Receipt Date: 20141119
  Transmission Date: 20150529
  Serious: Yes (Hospitalization, Other)
  Sender: FDA-Public Use
  Company Number: US-009507513-1203USA02815

PATIENT
  Sex: Female
  Weight: 79.37 kg

DRUGS (3)
  1. FOSAMAX [Suspect]
     Active Substance: ALENDRONATE SODIUM
     Dosage: 10 MG, UNK
     Route: 048
     Dates: start: 19990326
  2. FOSAMAX [Suspect]
     Active Substance: ALENDRONATE SODIUM
     Route: 048
  3. FOSAMAX [Suspect]
     Active Substance: ALENDRONATE SODIUM
     Dosage: 70 MG, QW
     Route: 048

REACTIONS (27)
  - Intramedullary rod insertion [Unknown]
  - Arthritis [Unknown]
  - Postoperative fever [Unknown]
  - Oral disorder [Unknown]
  - Hand fracture [Unknown]
  - Drug ineffective [Unknown]
  - Femur fracture [Recovering/Resolving]
  - Medical device removal [Unknown]
  - Intramedullary rod insertion [Unknown]
  - Spinal disorder [Unknown]
  - Femur fracture [Unknown]
  - Impaired healing [Unknown]
  - Asthma [Unknown]
  - Hypercholesterolaemia [Unknown]
  - Dental caries [Unknown]
  - Arthralgia [Unknown]
  - Femur fracture [Not Recovered/Not Resolved]
  - Atelectasis [Unknown]
  - Exposed bone in jaw [Unknown]
  - Osteoarthritis [Unknown]
  - Neck pain [Not Recovered/Not Resolved]
  - Open reduction of fracture [Unknown]
  - Upper respiratory tract infection [Unknown]
  - Decubitus ulcer [Unknown]
  - Joint stiffness [Unknown]
  - Osteopenia [Unknown]
  - Scoliosis [Unknown]

NARRATIVE: CASE EVENT DATE: 20010130
